FAERS Safety Report 16935506 (Version 1)
Quarter: 2019Q4

REPORT INFORMATION
  Report Type: Spontaneous
  Country: US (occurrence: US)
  Receive Date: 20191018
  Receipt Date: 20191018
  Transmission Date: 20200122
  Serious: No
  Sender: FDA-Public Use
  Company Number: US-SA-2019SA286062

PATIENT
  Sex: Female

DRUGS (1)
  1. ALLEGRA ALLERGY [Suspect]
     Active Substance: FEXOFENADINE HYDROCHLORIDE
     Indication: URTICARIA
     Dosage: UNK UNK, QD  2-4 ALLEGRA ALLERGY 24 HOUR TABLETS A DAY
     Route: 065

REACTIONS (3)
  - Urticaria [Unknown]
  - Condition aggravated [Unknown]
  - Prescribed overdose [Unknown]
